FAERS Safety Report 5206487-9 (Version None)
Quarter: 2007Q1

REPORT INFORMATION
  Report Type: 
  Country: None (occurrence: None)
  Receive Date: 20070111
  Receipt Date: 20070105
  Transmission Date: 20070707
  Serious: Yes (Other)
  Sender: FDA-Public Use
  Company Number: US-PFIZER INC-2007002386

PATIENT
  Sex: Male
  Weight: 27.2 kg

DRUGS (5)
  1. ZOLOFT [Suspect]
     Indication: DEPRESSION
  2. ZOLOFT [Suspect]
     Indication: OBSESSIVE-COMPULSIVE DISORDER
  3. SERTRALINE [Suspect]
     Indication: DEPRESSION
  4. SERTRALINE [Suspect]
     Indication: OBSESSIVE-COMPULSIVE DISORDER
  5. RISPERDAL [Concomitant]

REACTIONS (7)
  - ABDOMINAL PAIN UPPER [None]
  - AFFECT LABILITY [None]
  - AGGRESSION [None]
  - ANGINA PECTORIS [None]
  - BACK PAIN [None]
  - CHEST PAIN [None]
  - NAUSEA [None]
